FAERS Safety Report 8528520-9 (Version None)
Quarter: 2012Q3

REPORT INFORMATION
  Report Type: 
  Country: None (occurrence: None)
  Receive Date: 20120723
  Receipt Date: 20120712
  Transmission Date: 20120928
  Serious: No
  Sender: FDA-Public Use
  Company Number: US-009507513-1207USA003793

PATIENT

DRUGS (1)
  1. VICTRELIS [Suspect]

REACTIONS (2)
  - HEPATITIS C [None]
  - HEPATIC PAIN [None]
